FAERS Safety Report 18762552 (Version 1)
Quarter: 2021Q1

REPORT INFORMATION
  Report Type: Spontaneous
  Country: US (occurrence: US)
  Receive Date: 20210120
  Receipt Date: 20210120
  Transmission Date: 20210419
  Serious: No
  Sender: FDA-Public Use
  Company Number: US-ALKEM LABORATORIES LIMITED-US-ALKEM-2020-09094

PATIENT
  Age: 37 Year
  Sex: Female

DRUGS (6)
  1. COCONUT OIL [Suspect]
     Active Substance: COCONUT OIL
     Indication: ANTIFUNGAL TREATMENT
  2. NYSTATIN. [Suspect]
     Active Substance: NYSTATIN
     Indication: ANTIFUNGAL TREATMENT
     Dosage: UNK
     Route: 061
  3. ALL?PURPOSE NIPPLE OINTMENT [BETAMETHASONE\MICONAZOLE\MUPIROCIN] [Suspect]
     Active Substance: BETAMETHASONE\MICONAZOLE\MUPIROCIN
     Indication: ANTIFUNGAL TREATMENT
     Dosage: UNK
     Route: 061
  4. TRIAMCINOLONE ACETONIDE. [Suspect]
     Active Substance: TRIAMCINOLONE ACETONIDE
     Indication: DERMATITIS
     Dosage: UNK
     Route: 061
  5. COCONUT OIL [Suspect]
     Active Substance: COCONUT OIL
     Indication: DERMATITIS
     Dosage: UNK
     Route: 061
  6. FLUCONAZOLE. [Suspect]
     Active Substance: FLUCONAZOLE
     Indication: ANTIFUNGAL TREATMENT
     Dosage: UNK
     Route: 048

REACTIONS (2)
  - Exposure via breast milk [Unknown]
  - Drug ineffective [Unknown]
